FAERS Safety Report 19588368 (Version 1)
Quarter: 2021Q3

REPORT INFORMATION
  Report Type: Spontaneous
  Country: US (occurrence: US)
  Receive Date: 20210721
  Receipt Date: 20210721
  Transmission Date: 20211014
  Serious: Yes (Life-Threatening, Other)
  Sender: FDA-Public Use
  Company Number: None

PATIENT
  Age: 31 Year
  Sex: Female

DRUGS (9)
  1. FERAHEME [Suspect]
     Active Substance: FERUMOXYTOL NON-STOICHIOMETRIC MAGNETITE
     Indication: HYPOFERRITINAEMIA
     Dates: start: 20141016, end: 20141016
  2. VITAMIN C [Concomitant]
     Active Substance: ASCORBIC ACID
  3. VITAMIN B12 [Concomitant]
     Active Substance: CYANOCOBALAMIN
  4. FLORADIX [Concomitant]
     Active Substance: IRON
  5. APIDRA [Concomitant]
     Active Substance: INSULIN GLULISINE
  6. NATURE?THROID [Concomitant]
     Active Substance: THYROID, PORCINE
  7. MAGNESIUM GLYCINATE [Concomitant]
     Active Substance: MAGNESIUM GLYCINATE
  8. IRON BISGLYCINATE [Concomitant]
  9. CYTOMEL [Concomitant]
     Active Substance: LIOTHYRONINE SODIUM

REACTIONS (2)
  - Anaphylactic reaction [None]
  - Palpitations [None]

NARRATIVE: CASE EVENT DATE: 20141016
